FAERS Safety Report 11200605 (Version 1)
Quarter: 2015Q2

REPORT INFORMATION
  Report Type: Spontaneous
  Country: SE (occurrence: SE)
  Receive Date: 20150618
  Receipt Date: 20150618
  Transmission Date: 20150821
  Serious: Yes (Hospitalization)
  Sender: FDA-Public Use
  Company Number: SE-IMPAX LABORATORIES, INC-2015-IPXL-00639

PATIENT
  Age: 24 Year
  Sex: Female

DRUGS (1)
  1. DIVALPROEX SODIUM ER [Suspect]
     Active Substance: DIVALPROEX SODIUM
     Indication: PRODUCT USED FOR UNKNOWN INDICATION
     Dosage: 30G (APPROXIMATELY 100 TABLETS), UNK
     Route: 065

REACTIONS (7)
  - Loss of consciousness [Unknown]
  - Obstructive airways disorder [Recovered/Resolved]
  - Hypotension [Recovered/Resolved]
  - Delusion [Recovered/Resolved]
  - Seizure [Unknown]
  - Hallucination [Recovered/Resolved]
  - Overdose [Unknown]
